FAERS Safety Report 4821514-6 (Version None)
Quarter: 2005Q4

REPORT INFORMATION
  Report Type: 
  Country: None (occurrence: None)
  Receive Date: 20051107
  Receipt Date: 20050720
  Transmission Date: 20060501
  Serious: Yes (Life-Threatening, Hospitalization)
  Sender: FDA-Public Use
  Company Number: DE-GLAXOSMITHKLINE-D0047130A

PATIENT
  Age: 55 Year
  Sex: Female
  Weight: 104 kg

DRUGS (4)
  1. ELMENDOS [Suspect]
     Dosage: 75MG TWICE PER DAY
     Route: 065
     Dates: start: 20050301, end: 20050701
  2. CIPRAMIL [Concomitant]
     Indication: DEPRESSION
     Dosage: 20MG PER DAY
     Route: 065
     Dates: start: 20020101
  3. CHLORPROTHIXEN [Concomitant]
     Indication: SLEEP DISORDER
     Dosage: 80MG PER DAY
     Route: 065
     Dates: start: 19950901
  4. SULPIRID [Concomitant]
     Indication: PSYCHOTIC DISORDER
     Dosage: 100MG TWICE PER DAY
     Route: 065
     Dates: start: 20040501

REACTIONS (1)
  - PULMONARY EMBOLISM [None]
